FAERS Safety Report 12695665 (Version 1)
Quarter: 2016Q3

REPORT INFORMATION
  Report Type: Spontaneous
  Country: GB (occurrence: GB)
  Receive Date: 20160829
  Receipt Date: 20160829
  Transmission Date: 20161109
  Serious: Yes (Disabling)
  Sender: FDA-Public Use
  Company Number: GB-BAYER-2016-164131

PATIENT
  Age: 27 Year
  Sex: Female
  Weight: 48 kg

DRUGS (2)
  1. YASMIN [Suspect]
     Active Substance: DROSPIRENONE\ETHINYL ESTRADIOL
     Indication: CONTRACEPTION
  2. YASMIN [Suspect]
     Active Substance: DROSPIRENONE\ETHINYL ESTRADIOL
     Indication: ACNE
     Dosage: UNK
     Route: 048
     Dates: start: 20160301, end: 20160809

REACTIONS (5)
  - Abdominal distension [Unknown]
  - Nausea [Unknown]
  - Abdominal tenderness [Unknown]
  - Abdominal pain upper [Recovered/Resolved with Sequelae]
  - Lethargy [Unknown]

NARRATIVE: CASE EVENT DATE: 20160310
